FAERS Safety Report 6806210-8 (Version None)
Quarter: 2010Q2

REPORT INFORMATION
  Report Type: 
  Country: None (occurrence: None)
  Receive Date: 20100629
  Receipt Date: 20080131
  Transmission Date: 20101027
  Serious: Yes (Hospitalization, Other)
  Sender: FDA-Public Use
  Company Number: US-PFIZER INC-2008006431

PATIENT
  Sex: Male

DRUGS (3)
  1. BEXTRA [Suspect]
     Indication: BACK PAIN
     Dates: start: 19990101
  2. BEXTRA [Suspect]
     Indication: MUSCULOSKELETAL PAIN
  3. BEXTRA [Suspect]
     Indication: JOINT INJURY

REACTIONS (1)
  - MYOCARDIAL INFARCTION [None]
